FAERS Safety Report 9161238 (Version 1)
Quarter: 2013Q1

REPORT INFORMATION
  Report Type: Spontaneous
  Country: JP (occurrence: JP)
  Receive Date: 20130313
  Receipt Date: 20130313
  Transmission Date: 20140127
  Serious: Yes (Hospitalization)
  Sender: FDA-Public Use
  Company Number: JP-GLAXOSMITHKLINE-B0873389A

PATIENT
  Age: 56 Year
  Sex: Female

DRUGS (2)
  1. RELENZA [Suspect]
     Indication: INFLUENZA
     Route: 055
     Dates: start: 20130202
  2. MEPTIN [Concomitant]
     Indication: ASTHMA
     Dosage: 4IUAX PER DAY
     Route: 055

REACTIONS (2)
  - Dyspnoea [Unknown]
  - Asthma [Unknown]
